FAERS Safety Report 4988869-3 (Version None)
Quarter: 2006Q2

REPORT INFORMATION
  Report Type: 
  Country: None (occurrence: None)
  Receive Date: 20060425
  Receipt Date: 20060410
  Transmission Date: 20061013
  Serious: Yes (Other)
  Sender: FDA-Public Use
  Company Number: TRP_0750_2006

PATIENT
  Age: 59 Year
  Sex: Female

DRUGS (6)
  1. RIBASPHERE/RIBAVIRIN/THREE RIVERS PHARMA/200 MG [Suspect]
     Indication: HEPATITIS C
     Dosage: DF, UNK; PO
     Route: 048
     Dates: start: 20060107
  2. PEG-INTRON [Suspect]
     Indication: HEPATITIS C
     Dosage: 120 MCG, UNK, SC
     Route: 058
     Dates: start: 20060107
  3. ENALAPRIL MALEATE [Concomitant]
  4. NORVASC [Concomitant]
  5. PREVACID [Concomitant]
  6. TYLENOL EXTRA-STRENGTH [Concomitant]

REACTIONS (13)
  - ARTHRALGIA [None]
  - ASTHENIA [None]
  - ASTHMA [None]
  - CATARACT [None]
  - CONDITION AGGRAVATED [None]
  - DRY EYE [None]
  - DYSPNOEA EXERTIONAL [None]
  - FATIGUE [None]
  - FEELING HOT [None]
  - INJECTION SITE ERYTHEMA [None]
  - INJECTION SITE PRURITUS [None]
  - MUSCULAR WEAKNESS [None]
  - SENSATION OF HEAVINESS [None]
